FAERS Safety Report 4855706-7 (Version None)
Quarter: 2005Q4

REPORT INFORMATION
  Report Type: 
  Country: None (occurrence: None)
  Receive Date: 20051216
  Receipt Date: 20051205
  Transmission Date: 20060501
  Serious: Yes (Death, Hospitalization)
  Sender: FDA-Public Use
  Company Number: JP-ROCHE-427418

PATIENT
  Age: 62 Year
  Sex: Male

DRUGS (4)
  1. HORIZON [Suspect]
     Dosage: REPORTED AS CONTINUOUS. ROUTE REPORTED AS DR. DOSING: 5 MG UNSPECIFIED TIME), THEN 5 MG, (AT 16:00 +
     Route: 050
     Dates: start: 19960903, end: 19960903
  2. FAMOTIDINE [Concomitant]
     Dosage: ROUTE: DR.
     Route: 050
     Dates: start: 19960903, end: 19960903
  3. ALBUMIN (HUMAN) [Concomitant]
     Dosage: ROUTE: DR.
     Route: 050
     Dates: start: 19960903, end: 19960903
  4. 1 CONCOMITANT DRUG [Concomitant]
     Dosage: ROUTE: DR. REPORTED AS IVH.
     Route: 050
     Dates: start: 19960903, end: 19960903

REACTIONS (2)
  - SHOCK [None]
  - SMALL INTESTINAL HAEMORRHAGE [None]
